FAERS Safety Report 13543852 (Version 1)
Quarter: 2017Q2

REPORT INFORMATION
  Report Type: Spontaneous
  Country: IN (occurrence: IN)
  Receive Date: 20170515
  Receipt Date: 20170515
  Transmission Date: 20170830
  Serious: Yes (Death)
  Sender: FDA-Public Use
  Company Number: IN-ORPHAN EUROPE-2020718

PATIENT
  Age: 2 Month
  Sex: Male
  Weight: 4.6 kg

DRUGS (12)
  1. CARBAGLU [Suspect]
     Active Substance: CARGLUMIC ACID
     Dates: end: 20160719
  2. CARBAGLU [Suspect]
     Active Substance: CARGLUMIC ACID
     Dates: start: 20160720, end: 20160726
  3. LEVOCARNITINE. [Concomitant]
     Active Substance: LEVOCARNITINE
     Dates: start: 20160518
  4. SODIUM BENZOATE [Concomitant]
     Active Substance: SODIUM BENZOATE
     Dates: start: 201606
  5. CARBAGLU [Suspect]
     Active Substance: CARGLUMIC ACID
     Indication: HYPERAMMONAEMIA
     Dates: start: 20160520, end: 20160521
  6. CARBAGLU [Suspect]
     Active Substance: CARGLUMIC ACID
     Dates: start: 20160522
  7. CARBAGLU [Suspect]
     Active Substance: CARGLUMIC ACID
     Dates: start: 20160521, end: 20160522
  8. CARBAGLU [Suspect]
     Active Substance: CARGLUMIC ACID
     Dates: start: 201606
  9. CARBAGLU [Suspect]
     Active Substance: CARGLUMIC ACID
     Dates: start: 20160727
  10. L-ARGININE [Concomitant]
     Active Substance: ARGININE
     Dates: start: 20160518
  11. LEVETIRACETAM. [Concomitant]
     Active Substance: LEVETIRACETAM
     Dates: start: 20160522
  12. DUPHALAC [Concomitant]
     Active Substance: LACTULOSE
     Dates: start: 20160518

REACTIONS (2)
  - Underdose [Recovered/Resolved]
  - Ventricular tachycardia [Fatal]

NARRATIVE: CASE EVENT DATE: 20160720
